FAERS Safety Report 4468161-6 (Version None)
Quarter: 2004Q4

REPORT INFORMATION
  Report Type: 
  Country: None (occurrence: None)
  Receive Date: 20041001
  Receipt Date: 20040916
  Transmission Date: 20050328
  Serious: Yes (Life-Threatening, Other)
  Sender: FDA-Public Use
  Company Number: C2003-1822.04

PATIENT
  Age: 15 Year
  Sex: Male

DRUGS (9)
  1. CYSTAGON [Suspect]
     Indication: CYSTINOSIS
     Dosage: 1600 MG/DAY ORAL, AGE4
     Route: 048
  2. CYSTEAMININE EYE DROPS SIGMA TAU [Suspect]
     Dosage: AGE 13
  3. CYCLOSPORINE [Concomitant]
  4. PREDNISONE [Concomitant]
  5. AZATHIOPRINE [Concomitant]
  6. POTASSIUM CHLORIDE [Concomitant]
  7. CHLOROTHIAZIDE [Concomitant]
  8. ATENOLOL [Concomitant]
  9. DILTIAZEM [Concomitant]

REACTIONS (2)
  - INTRACRANIAL PRESSURE INCREASED [None]
  - PAPILLOEDEMA [None]
